FAERS Safety Report 11828083 (Version 4)
Quarter: 2016Q3

REPORT INFORMATION
  Report Type: Report from Study
  Country: SG (occurrence: SG)
  Receive Date: 20151211
  Receipt Date: 20160803
  Transmission Date: 20161109
  Serious: Yes (Hospitalization)
  Sender: FDA-Public Use
  Company Number: SG-ASTRAZENECA-2015SF20118

PATIENT
  Age: 21097 Day
  Sex: Male

DRUGS (11)
  1. CO-AMOXICLAV [Concomitant]
     Active Substance: AMOXICILLIN\CLAVULANIC ACID
     Indication: CHOLECYSTITIS
     Dates: start: 20151023, end: 20151026
  2. PARACETAMOL [Concomitant]
     Active Substance: ACETAMINOPHEN
     Dosage: 500.0MG AS REQUIRED
     Dates: start: 20151023, end: 20151030
  3. OMEPRAZOLE. [Concomitant]
     Active Substance: OMEPRAZOLE
     Indication: GASTRITIS
     Dates: start: 20151023, end: 20151030
  4. AMOXICILLIN. [Concomitant]
     Active Substance: AMOXICILLIN
  5. CLARITHROMYCIN. [Concomitant]
     Active Substance: CLARITHROMYCIN
  6. FERROUS FUMARATE [Concomitant]
     Active Substance: FERROUS FUMARATE
  7. TICAGRELOR [Suspect]
     Active Substance: TICAGRELOR
     Indication: THROMBOSIS PROPHYLAXIS
     Route: 048
     Dates: start: 20140205, end: 20151111
  8. ACETYLSALICYLIC ACID [Suspect]
     Active Substance: ASPIRIN
     Indication: THROMBOSIS PROPHYLAXIS
     Dosage: NON-AZ PRODUCT, 100MG DAILY
     Route: 048
     Dates: start: 20140110, end: 20140307
  9. TRAMADOL HCL [Concomitant]
     Active Substance: TRAMADOL HYDROCHLORIDE
     Indication: GOUT
     Dates: start: 20151023, end: 20151030
  10. OMEPRAZOLE. [Concomitant]
     Active Substance: OMEPRAZOLE
     Indication: GASTRITIS
  11. NAPROXEN SODIUM. [Suspect]
     Active Substance: NAPROXEN SODIUM
     Indication: GOUT
     Route: 048
     Dates: start: 20151023, end: 20151026

REACTIONS (6)
  - Faeces discoloured [Recovered/Resolved]
  - Gastrointestinal haemorrhage [Unknown]
  - Gastritis [Recovering/Resolving]
  - Anaemia [Recovered/Resolved]
  - Duodenal ulcer [Recovering/Resolving]
  - Hypotension [Recovered/Resolved]

NARRATIVE: CASE EVENT DATE: 20151108
